FAERS Safety Report 7498459-9 (Version None)
Quarter: 2011Q2

REPORT INFORMATION
  Report Type: 
  Country: None (occurrence: None)
  Receive Date: 20110524
  Receipt Date: 20110504
  Transmission Date: 20111010
  Serious: Yes (Life-Threatening, Other)
  Sender: FDA-Public Use
  Company Number: PL-BAYER-2011-037946

PATIENT
  Age: 38 Year
  Sex: Female
  Weight: 68 kg

DRUGS (1)
  1. QLAIRA [Suspect]
     Dosage: UNK
     Route: 048
     Dates: start: 20100215, end: 20110427

REACTIONS (3)
  - VENOUS INSUFFICIENCY [None]
  - PREGNANCY ON CONTRACEPTIVE [None]
  - PHLEBITIS [None]
